FAERS Safety Report 6739669-5 (Version None)
Quarter: 2010Q2

REPORT INFORMATION
  Report Type: 
  Country: None (occurrence: None)
  Receive Date: 20100525
  Receipt Date: 20100426
  Transmission Date: 20101027
  Serious: No
  Sender: FDA-Public Use
  Company Number: US-AMGEN-KDL408313

PATIENT
  Sex: Male
  Weight: 86.6 kg

DRUGS (4)
  1. NPLATE [Suspect]
     Indication: IDIOPATHIC THROMBOCYTOPENIC PURPURA
     Dates: start: 20090901
  2. DARVOCET-N 100 [Concomitant]
  3. FLEXERIL [Concomitant]
  4. NEXIUM [Concomitant]

REACTIONS (1)
  - OEDEMA PERIPHERAL [None]
